FAERS Safety Report 10403048 (Version 1)
Quarter: 2014Q3

REPORT INFORMATION
  Report Type: Spontaneous
  Country: FR (occurrence: FR)
  Receive Date: 20140822
  Receipt Date: 20140822
  Transmission Date: 20150326
  Serious: Yes (Hospitalization)
  Sender: FDA-Public Use
  Company Number: FR-ABBOTT-14X-056-1189593-00

PATIENT
  Age: 28 Year
  Sex: Female

DRUGS (2)
  1. ERYTHROCINE 1000MG, GRANULES POUR SOLUTION BUVABLE EN SACHET-DOSE [Suspect]
     Active Substance: ERYTHROMYCIN
     Indication: URETHRITIS UREAPLASMAL
     Route: 048
     Dates: start: 20140801, end: 20140802
  2. OFLOCET [Suspect]
     Active Substance: OFLOXACIN
     Indication: URETHRITIS UREAPLASMAL
     Route: 048
     Dates: start: 20140801, end: 20140802

REACTIONS (5)
  - Chest pain [Recovered/Resolved]
  - Cell death [None]
  - Hepatitis [Recovered/Resolved]
  - Cholestasis [None]
  - Abdominal pain upper [Recovered/Resolved]

NARRATIVE: CASE EVENT DATE: 20140801
